FAERS Safety Report 16687363 (Version 1)
Quarter: 2019Q3

REPORT INFORMATION
  Report Type: Spontaneous
  Country: US (occurrence: US)
  Receive Date: 20190809
  Receipt Date: 20190809
  Transmission Date: 20191004
  Serious: No
  Sender: FDA-Public Use
  Company Number: US-TARO-2019TAR00240

PATIENT
  Age: 68 Year
  Sex: Female

DRUGS (1)
  1. METRONIDAZOLE GEL USP 0.75% [Suspect]
     Active Substance: METRONIDAZOLE
     Dosage: UNK
     Dates: start: 20190325, end: 20190327

REACTIONS (1)
  - Erythema [Not Recovered/Not Resolved]

NARRATIVE: CASE EVENT DATE: 20190327
